FAERS Safety Report 19481806 (Version 1)
Quarter: 2021Q3

REPORT INFORMATION
  Report Type: Spontaneous
  Country: US (occurrence: US)
  Receive Date: 20210701
  Receipt Date: 20210701
  Transmission Date: 20211014
  Serious: No
  Sender: FDA-Public Use
  Company Number: US-KEDRION-2021-000006

PATIENT
  Age: 18 Year
  Sex: Female

DRUGS (1)
  1. RHOGAM ULTRA?FILTERED PLUS [Suspect]
     Active Substance: HUMAN RHO(D) IMMUNE GLOBULIN
     Indication: PROPHYLAXIS AGAINST RH ISOIMMUNISATION
     Dosage: UNK, SINGLE
     Route: 030
     Dates: start: 20210114, end: 20210114

REACTIONS (4)
  - Injection site erythema [Unknown]
  - Needle issue [Unknown]
  - Injection site swelling [Unknown]
  - Product quality issue [Unknown]

NARRATIVE: CASE EVENT DATE: 20210114
